FAERS Safety Report 5441204-9 (Version None)
Quarter: 2007Q3

REPORT INFORMATION
  Report Type: 
  Country: None (occurrence: None)
  Receive Date: 20070901
  Receipt Date: 20070822
  Transmission Date: 20080115
  Serious: Yes (Death, Other)
  Sender: FDA-Public Use
  Company Number: JP-PFIZER INC-2007070584

PATIENT
  Age: 48 Year
  Sex: Female

DRUGS (3)
  1. SOLU-MEDROL [Suspect]
     Indication: PYODERMA GANGRENOSUM
     Route: 050
  2. COLCHICINE [Concomitant]
     Route: 048
  3. LECTISOL [Concomitant]
     Route: 048

REACTIONS (2)
  - MULTI-ORGAN FAILURE [None]
  - PYODERMA GANGRENOSUM [None]
